FAERS Safety Report 12571187 (Version 1)
Quarter: 2016Q3

REPORT INFORMATION
  Report Type: Spontaneous
  Country: US (occurrence: US)
  Receive Date: 20160719
  Receipt Date: 20160719
  Transmission Date: 20161109
  Serious: No
  Sender: FDA-Public Use
  Company Number: US-GALDERMA-US15007777

PATIENT
  Age: 40 Year
  Sex: Female

DRUGS (4)
  1. ORACEA [Suspect]
     Active Substance: DOXYCYCLINE
     Indication: ROSACEA
     Route: 061
     Dates: start: 20131001, end: 20131113
  2. LESSINA (ETHINYL ESTRADIOL AND LEVONORGESTREL) [Concomitant]
     Indication: CONTRACEPTION
     Route: 048
  3. UNKNOWN MOISTURIZER [Concomitant]
     Route: 061
  4. ACZONE (DAPZONE) GEL, 5% [Concomitant]
     Dosage: 5%
     Route: 061
     Dates: start: 20120716, end: 20130103

REACTIONS (2)
  - Drug ineffective for unapproved indication [Recovered/Resolved]
  - Product use issue [Recovered/Resolved]

NARRATIVE: CASE EVENT DATE: 2013
